FAERS Safety Report 5566911-9 (Version None)
Quarter: 2007Q4

REPORT INFORMATION
  Report Type: 
  Country: None (occurrence: None)
  Receive Date: 20071219
  Receipt Date: 20070122
  Transmission Date: 20080405
  Serious: No
  Sender: FDA-Public Use
  Company Number: US-BRISTOL-MYERS SQUIBB COMPANY-13650353

PATIENT
  Age: 81 Year
  Sex: Female
  Weight: 66 kg

DRUGS (6)
  1. PRAVACHOL [Suspect]
     Indication: CARDIAC DISORDER
  2. PRAVACHOL [Suspect]
     Indication: BLOOD CHOLESTEROL INCREASED
  3. LOPRESSOR [Concomitant]
  4. PREVACID [Concomitant]
  5. FOLIC ACID [Concomitant]
  6. VITAMIN D [Concomitant]

REACTIONS (3)
  - INSOMNIA [None]
  - MUSCLE SPASMS [None]
  - POLLAKIURIA [None]
